FAERS Safety Report 17933425 (Version 1)
Quarter: 2020Q2

REPORT INFORMATION
  Report Type: Spontaneous
  Country: DK (occurrence: DK)
  Receive Date: 20200623
  Receipt Date: 20200623
  Transmission Date: 20200714
  Serious: Yes (Other)
  Sender: FDA-Public Use
  Company Number: DK-NOVOPROD-733956

PATIENT
  Age: 58 Year
  Sex: Female
  Weight: 100 kg

DRUGS (3)
  1. SAXENDA [Suspect]
     Active Substance: LIRAGLUTIDE
     Indication: OVERWEIGHT
     Dosage: DOSE INCREASE TO 1.8MG ON 21 (UNSPECIFIED)
     Route: 065
     Dates: start: 20200507, end: 20200523
  2. ROSUVASTATIN ACCORD [Concomitant]
     Active Substance: ROSUVASTATIN
     Indication: HYPERCHOLESTEROLAEMIA
     Dosage: 10 MG, QD
     Route: 048
     Dates: start: 20150101
  3. LOSARTANKALIUM/HYDROCHLORTHIAZID ^TEVA^ [Concomitant]
     Active Substance: HYDROCHLOROTHIAZIDE\LOSARTAN POTASSIUM
     Indication: HYPERTENSION
     Dosage: 100 MG, QD
     Route: 048
     Dates: start: 20150101

REACTIONS (4)
  - C-reactive protein increased [Unknown]
  - Pancreatitis acute [Recovering/Resolving]
  - Abdominal pain upper [Unknown]
  - Amylase increased [Unknown]

NARRATIVE: CASE EVENT DATE: 20200522
